FAERS Safety Report 7336340-6 (Version None)
Quarter: 2011Q1

REPORT INFORMATION
  Report Type: 
  Country: None (occurrence: None)
  Receive Date: 20110307
  Receipt Date: 20110301
  Transmission Date: 20110831
  Serious: Yes (Hospitalization, Congenital Anomaly, Other)
  Sender: FDA-Public Use
  Company Number: US-RB-020230-11

PATIENT
  Sex: Male

DRUGS (5)
  1. TYLENOL W/ CODEINE [Suspect]
     Indication: DRUG DEPENDENCE
     Dosage: DOSING DETAILS UNKNOWN
     Route: 064
     Dates: start: 20101201, end: 20101201
  2. MARIJUANA [Suspect]
     Indication: DRUG DEPENDENCE
     Dosage: DOSING DETAILS UNKNOWN
     Route: 064
     Dates: end: 20101201
  3. CIGARETTES [Suspect]
     Indication: TOBACCO USER
     Dosage: DOSING DETAILS UNKNOWN
     Route: 064
  4. SUBUTEX [Suspect]
     Indication: DRUG DEPENDENCE
     Dosage: DOSING DETAILS UNKNOWN
     Route: 064
     Dates: start: 20100101, end: 20101201
  5. METHADONE [Suspect]
     Indication: DRUG DEPENDENCE
     Dosage: DOSING DETAILS UNKNOWN
     Route: 064
     Dates: start: 20101201, end: 20101201

REACTIONS (5)
  - DRUG EXPOSURE DURING PREGNANCY [None]
  - BRAIN HYPOXIA [None]
  - DRUG WITHDRAWAL SYNDROME NEONATAL [None]
  - CONVULSION [None]
  - BRAIN INJURY [None]
